FAERS Safety Report 5701607-1 (Version None)
Quarter: 2008Q2

REPORT INFORMATION
  Report Type: 
  Country: None (occurrence: None)
  Receive Date: 20080410
  Receipt Date: 20080410
  Transmission Date: 20081010
  Serious: No
  Sender: FDA-Public Use
  Company Number: None

PATIENT
  Age: 69 Year
  Sex: Male
  Weight: 95.2554 kg

DRUGS (2)
  1. AMITIZA [Suspect]
     Indication: CONSTIPATION
     Dosage: 24 MCG. BID P.O.
     Route: 048
     Dates: start: 20071102, end: 20080215
  2. AMITIZA [Suspect]
     Indication: MEGACOLON
     Dosage: 24 MCG. BID P.O.
     Route: 048
     Dates: start: 20071102, end: 20080215

REACTIONS (10)
  - ABDOMINAL DISTENSION [None]
  - ASTHENIA [None]
  - BACK PAIN [None]
  - CONSTIPATION [None]
  - FATIGUE [None]
  - LOCALISED OEDEMA [None]
  - OEDEMA PERIPHERAL [None]
  - SINUSITIS [None]
  - WEIGHT DECREASED [None]
  - WEIGHT INCREASED [None]
